FAERS Safety Report 5949487-3 (Version None)
Quarter: 2008Q4

REPORT INFORMATION
  Report Type: 
  Country: None (occurrence: None)
  Receive Date: 20081112
  Receipt Date: 20081104
  Transmission Date: 20090506
  Serious: Yes (Death, Hospitalization)
  Sender: FDA-Public Use
  Company Number: PHHY2008BR26665

PATIENT
  Age: 87 Year
  Sex: Female

DRUGS (3)
  1. EXFORGE [Suspect]
     Indication: BLOOD PRESSURE ABNORMAL
     Dosage: 1 DF, QD
     Route: 048
  2. OSTAC [Concomitant]
     Dosage: 1 DF, QMO
     Route: 042
  3. ARIMIDEX [Concomitant]
     Indication: FRACTURE
     Dosage: UNK

REACTIONS (3)
  - CARDIAC ARREST [None]
  - CEREBROVASCULAR ACCIDENT [None]
  - CONVULSION [None]
